FAERS Safety Report 14305652 (Version 2)
Quarter: 2018Q1

REPORT INFORMATION
  Report Type: Report from Study
  Country: BR (occurrence: BR)
  Receive Date: 20171219
  Receipt Date: 20180125
  Transmission Date: 20180509
  Serious: Yes (Hospitalization)
  Sender: FDA-Public Use
  Company Number: PHHY2017BR185536

PATIENT
  Sex: Female
  Weight: 69 kg

DRUGS (2)
  1. FORASEQ [Suspect]
     Active Substance: BUDESONIDE\FORMOTEROL FUMARATE
     Indication: PRODUCT USED FOR UNKNOWN INDICATION
     Route: 065
  2. ULTIBRO BREEZHALER [Suspect]
     Active Substance: GLYCOPYRRONIUM\INDACATEROL
     Indication: PRODUCT USED FOR UNKNOWN INDICATION
     Dosage: (GLYCOPYRRONIUM BROMIDE 50 UG, INDACATEROL 110 UG)
     Route: 065

REACTIONS (3)
  - Visual impairment [Unknown]
  - Dyspnoea [Not Recovered/Not Resolved]
  - Hypoacusis [Unknown]
